FAERS Safety Report 7610285-6 (Version None)
Quarter: 2011Q3

REPORT INFORMATION
  Report Type: 
  Country: None (occurrence: None)
  Receive Date: 20110706
  Receipt Date: 20110622
  Transmission Date: 20111222
  Serious: Yes (Hospitalization)
  Sender: FDA-Public Use
  Company Number: 966711

PATIENT
  Age: 64 Year
  Sex: Female

DRUGS (2)
  1. DOCETAXEL [Suspect]
     Indication: NEOPLASM MALIGNANT
     Dosage: CYCLE 1, INTRAVENOUS (NOT OTHERWISE SPECIFIED), CYCLE 2, INTRAVENOUS (NOT OTHERWISE SPECIFIED)
     Route: 042
     Dates: start: 20110519
  2. DOCETAXEL [Suspect]
     Indication: NEOPLASM MALIGNANT
     Dosage: CYCLE 1, INTRAVENOUS (NOT OTHERWISE SPECIFIED), CYCLE 2, INTRAVENOUS (NOT OTHERWISE SPECIFIED)
     Route: 042
     Dates: start: 20110420

REACTIONS (3)
  - RASH [None]
  - MUCOUS MEMBRANE DISORDER [None]
  - AGRANULOCYTOSIS [None]
